FAERS Safety Report 7894719-8 (Version None)
Quarter: 2011Q4

REPORT INFORMATION
  Report Type: 
  Country: None (occurrence: None)
  Receive Date: 20111106
  Receipt Date: 20110817
  Transmission Date: 20120403
  Serious: No
  Sender: FDA-Public Use
  Company Number: US-AMGEN-USASP2011042125

PATIENT
  Age: 44 Year
  Sex: Female

DRUGS (10)
  1. ASPIRIN [Concomitant]
     Dosage: 325 MG, UNK
  2. LEVOTHYROXINE                      /00068002/ [Concomitant]
     Dosage: 88 MUG, UNK
  3. MELOXICAM [Concomitant]
     Dosage: 7.5 MG, UNK
  4. HYDROXYCHLOROQUINE                 /00072603/ [Concomitant]
     Dosage: 200 MG, UNK
  5. FOLIC ACID [Concomitant]
     Dosage: 1 MG, UNK
  6. TRIAM                              /00012501/ [Concomitant]
     Dosage: UNK
  7. CALCIUM 600 + D [Concomitant]
     Dosage: UNK
  8. NEXIUM [Concomitant]
     Dosage: 20 MG, UNK
  9. ENBREL [Suspect]
     Indication: PRODUCT USED FOR UNKNOWN INDICATION
     Dosage: 50 MG, QWK
  10. PREDNISONE [Concomitant]
     Dosage: 1 MG, UNK

REACTIONS (1)
  - SINUSITIS [None]
